FAERS Safety Report 16752453 (Version 2)
Quarter: 2020Q1

REPORT INFORMATION
  Report Type: Spontaneous
  Country: CA (occurrence: CA)
  Receive Date: 20190828
  Receipt Date: 20200114
  Transmission Date: 20200409
  Serious: Yes (Death, Life-Threatening, Other)
  Sender: FDA-Public Use
  Company Number: CA-TEVA-2019-CA-1099480

PATIENT
  Age: 17 Year
  Sex: Male

DRUGS (1)
  1. MORPHINE SULFATE. [Suspect]
     Active Substance: MORPHINE SULFATE
     Indication: PROCEDURAL PAIN
     Route: 065

REACTIONS (7)
  - Brain hypoxia [Fatal]
  - Seizure [Fatal]
  - Drug monitoring procedure incorrectly performed [Fatal]
  - Bradycardia [Fatal]
  - Brain death [Fatal]
  - Cardio-respiratory arrest [Fatal]
  - Condition aggravated [Fatal]
